FAERS Safety Report 15311954 (Version 1)
Quarter: 2018Q3

REPORT INFORMATION
  Report Type: Spontaneous
  Country: IT (occurrence: IT)
  Receive Date: 20180823
  Receipt Date: 20180823
  Transmission Date: 20181010
  Serious: Yes (Death)
  Sender: FDA-Public Use
  Company Number: IT-DSJP-DSE-2018-137648

PATIENT

DRUGS (4)
  1. PLAUNAC [Suspect]
     Active Substance: OLMESARTAN MEDOXOMIL
     Indication: HYPERTENSION
     Dosage: 20 MG, BID
     Route: 048
     Dates: start: 20080417, end: 20080622
  2. OLMESARTAN MEDOXOMIL; HYDROCHLOROTHIAZIDE [Interacting]
     Active Substance: HYDROCHLOROTHIAZIDE\OLMESARTAN MEDOXOMIL
     Indication: HYPERTENSION
     Dosage: 20/? MG, BID
     Route: 048
     Dates: start: 20080417, end: 20080622
  3. VIAGRA [Interacting]
     Active Substance: SILDENAFIL CITRATE
     Indication: PROSTATECTOMY
     Route: 048
  4. VIAGRA [Interacting]
     Active Substance: SILDENAFIL CITRATE
     Indication: ERECTILE DYSFUNCTION
     Dosage: 100 MG, AS NEEDED
     Route: 048
     Dates: start: 20050101

REACTIONS (4)
  - Cerebrovascular insufficiency [Fatal]
  - Overdose [Fatal]
  - Drug interaction [Fatal]
  - Hypotension [Fatal]

NARRATIVE: CASE EVENT DATE: 20080417
